FAERS Safety Report 6966958-1 (Version None)
Quarter: 2010Q3

REPORT INFORMATION
  Report Type: 
  Country: None (occurrence: None)
  Receive Date: 20100906
  Receipt Date: 20100823
  Transmission Date: 20110219
  Serious: Yes (Hospitalization, Other)
  Sender: FDA-Public Use
  Company Number: PHHY2010JP56983

PATIENT
  Sex: Female

DRUGS (6)
  1. DIOVAN [Suspect]
     Indication: HYPERTENSION
     Dosage: 80 MG, QD
     Route: 048
     Dates: start: 20090106, end: 20091221
  2. AZELASTINE HCL [Concomitant]
     Indication: HYPERTENSION
     Dosage: 16 MG
     Route: 048
     Dates: start: 20091118, end: 20091221
  3. BONALON [Concomitant]
     Dosage: 5 MG
     Route: 048
     Dates: start: 20081203, end: 20091221
  4. MECOBALAMIN [Concomitant]
     Dosage: 500 UG
     Route: 048
     Dates: start: 20081126, end: 20091221
  5. CELECOXIB [Concomitant]
     Dosage: 100 MG
     Route: 048
     Dates: start: 20081126, end: 20091221
  6. FERRUM [Concomitant]
     Dosage: 100 MG
     Route: 048
     Dates: start: 20081203, end: 20091221

REACTIONS (3)
  - BLOOD PRESSURE DIASTOLIC DECREASED [None]
  - MULTI-ORGAN FAILURE [None]
  - SPINAL COLUMN STENOSIS [None]
